FAERS Safety Report 8347548-5 (Version None)
Quarter: 2012Q2

REPORT INFORMATION
  Report Type: 
  Country: None (occurrence: None)
  Receive Date: 20120509
  Receipt Date: 20120426
  Transmission Date: 20120825
  Serious: Yes (Other)
  Sender: FDA-Public Use
  Company Number: US-ROCHE-1052081

PATIENT
  Sex: Male

DRUGS (8)
  1. ZELBORAF [Suspect]
     Indication: METASTATIC MALIGNANT MELANOMA
     Dosage: 4 TABS
     Route: 048
  2. PREDNISONE TAB [Concomitant]
     Route: 048
  3. ZOCOR [Concomitant]
     Route: 048
  4. LEVETIRACETAM [Concomitant]
     Route: 048
  5. ONDANSETRON [Concomitant]
     Route: 048
  6. LOPERAMIDE [Concomitant]
     Dosage: 2-4 MG
     Route: 048
  7. POTASSIUM CHLORIDE [Concomitant]
     Route: 048
  8. OMEGA 3 FATTY ACIDS [Concomitant]
     Route: 048

REACTIONS (8)
  - MYALGIA [None]
  - DISEASE PROGRESSION [None]
  - SKIN PAPILLOMA [None]
  - DIARRHOEA [None]
  - FATIGUE [None]
  - ARTHRALGIA [None]
  - RASH [None]
  - ERYTHEMA [None]
